FAERS Safety Report 14543389 (Version 1)
Quarter: 2018Q1

REPORT INFORMATION
  Report Type: Spontaneous
  Country: US (occurrence: US)
  Receive Date: 20180216
  Receipt Date: 20180216
  Transmission Date: 20180509
  Serious: Yes (Other)
  Sender: FDA-Public Use
  Company Number: US-UCBSA-2018007041

PATIENT
  Age: 11 Year
  Sex: Female

DRUGS (3)
  1. KEPPRA [Suspect]
     Active Substance: LEVETIRACETAM
     Indication: SEIZURE
     Dosage: 2500 MG, A DAY
  2. TEGRETOL [Concomitant]
     Active Substance: CARBAMAZEPINE
     Indication: SEIZURE
     Dosage: 700 MG, A DAY
  3. EPILIM [Suspect]
     Active Substance: VALPROATE SODIUM
     Indication: SEIZURE

REACTIONS (5)
  - Focal dyscognitive seizures [Unknown]
  - Change in seizure presentation [Unknown]
  - Fatigue [Not Recovered/Not Resolved]
  - Generalised tonic-clonic seizure [Unknown]
  - Headache [Unknown]
